FAERS Safety Report 18601351 (Version 1)
Quarter: 2020Q4

REPORT INFORMATION
  Report Type: Report from Study
  Country: FI (occurrence: FI)
  Receive Date: 20201210
  Receipt Date: 20201210
  Transmission Date: 20210114
  Serious: Yes (Hospitalization)
  Sender: FDA-Public Use
  Company Number: FI-MYLANLABS-2020M1100660

PATIENT
  Age: 43 Year
  Sex: Female

DRUGS (3)
  1. CISORDINOL                         /00876702/ [Concomitant]
     Active Substance: ZUCLOPENTHIXOL
     Dosage: UNK
  2. LEPONEX [Suspect]
     Active Substance: CLOZAPINE
     Indication: PRODUCT USED FOR UNKNOWN INDICATION
     Dosage: 250 MILLIGRAM, QD
  3. CISORDINOL                         /00876702/ [Concomitant]
     Active Substance: ZUCLOPENTHIXOL
     Dosage: UNK

REACTIONS (2)
  - Off label use [Unknown]
  - Hospitalisation [Recovered/Resolved]
